FAERS Safety Report 14359289 (Version 1)
Quarter: 2018Q1

REPORT INFORMATION
  Report Type: Spontaneous
  Country: US (occurrence: US)
  Receive Date: 20180105
  Receipt Date: 20180105
  Transmission Date: 20180509
  Serious: No
  Sender: FDA-Public Use
  Company Number: US-SA-2017SA125755

PATIENT
  Age: 54 Year
  Sex: Female

DRUGS (1)
  1. ZANTAC [Suspect]
     Active Substance: RANITIDINE HYDROCHLORIDE
     Indication: GASTROOESOPHAGEAL REFLUX DISEASE
     Route: 048
     Dates: start: 20170701

REACTIONS (6)
  - Dyspepsia [Unknown]
  - Weight increased [Unknown]
  - Menopause [Unknown]
  - Drug ineffective [Unknown]
  - Hypersensitivity [Unknown]
  - Salivary hypersecretion [Unknown]
